FAERS Safety Report 22289337 (Version 3)
Quarter: 2023Q2

REPORT INFORMATION
  Report Type: Report from Study
  Country: US (occurrence: US)
  Receive Date: 20230505
  Receipt Date: 20230613
  Transmission Date: 20230722
  Serious: Yes (Hospitalization, Other)
  Sender: FDA-Public Use
  Company Number: US-MALLINCKRODT-MNK202300575

PATIENT
  Age: 64 Year
  Sex: Male

DRUGS (2)
  1. CORTICOTROPIN [Suspect]
     Active Substance: CORTICOTROPIN
     Indication: Psoriatic arthropathy
     Dosage: 80 UNITS
     Dates: start: 20230302
  2. PREDNISONE [Concomitant]
     Active Substance: PREDNISONE
     Indication: Product used for unknown indication
     Dosage: UNKNOWN

REACTIONS (12)
  - Diabetes mellitus [Not Recovered/Not Resolved]
  - Fall [Unknown]
  - Polyp [Unknown]
  - Polypectomy [Unknown]
  - Rectal haemorrhage [Not Recovered/Not Resolved]
  - Immunosuppression [Not Recovered/Not Resolved]
  - Joint injury [Unknown]
  - General physical health deterioration [Unknown]
  - Contusion [Unknown]
  - Peripheral swelling [Unknown]
  - Joint swelling [Not Recovered/Not Resolved]
  - Drug ineffective [Not Recovered/Not Resolved]

NARRATIVE: CASE EVENT DATE: 20230101
